FAERS Safety Report 19449933 (Version 2)
Quarter: 2022Q2

REPORT INFORMATION
  Report Type: Spontaneous
  Country: US (occurrence: US)
  Receive Date: 20210622
  Receipt Date: 20220523
  Transmission Date: 20220721
  Serious: Yes (Hospitalization, Other)
  Sender: FDA-Public Use
  Company Number: US-HORIZON THERAPEUTICS-HZN-2021-003467

PATIENT

DRUGS (6)
  1. RAYOS [Suspect]
     Active Substance: PREDNISONE
     Indication: Product used for unknown indication
     Dosage: UNK
     Dates: start: 202004
  2. REMODULIN [Suspect]
     Active Substance: TREPROSTINIL
     Indication: Pulmonary arterial hypertension
     Dosage: 0.07 UG/KG
     Route: 058
     Dates: start: 20150903
  3. REMODULIN [Suspect]
     Active Substance: TREPROSTINIL
     Dosage: 0.077 UG/KG
     Route: 058
  4. REMODULIN [Suspect]
     Active Substance: TREPROSTINIL
     Dosage: 0.042 ML/HR
     Route: 058
  5. REMODULIN [Suspect]
     Active Substance: TREPROSTINIL
     Dosage: 0.044 ML/HR
     Route: 058
  6. REMODULIN [Suspect]
     Active Substance: TREPROSTINIL
     Dosage: 0.084 UG/KG
     Route: 058

REACTIONS (5)
  - COVID-19 pneumonia [Unknown]
  - Lethargy [Unknown]
  - Somnolence [Unknown]
  - Disturbance in attention [Unknown]
  - Drug hypersensitivity [Unknown]

NARRATIVE: CASE EVENT DATE: 20200425
